FAERS Safety Report 8339093 (Version 6)
Quarter: 2015Q4

REPORT INFORMATION
  Report Type: Spontaneous
  Country: US (occurrence: US)
  Receive Date: 20120117
  Receipt Date: 20151203
  Transmission Date: 20160305
  Serious: Yes (Other)
  Sender: FDA-Public Use
  Company Number: US-BAYER-2012-003797

PATIENT
  Age: 33 Year
  Sex: Female
  Weight: 62.81 kg

DRUGS (16)
  1. CRESTOR [Concomitant]
     Active Substance: ROSUVASTATIN CALCIUM
  2. SIMVASTIN [Concomitant]
     Active Substance: SIMVASTATIN
  3. ALPRAZOLAM. [Concomitant]
     Active Substance: ALPRAZOLAM
     Dosage: 0.25 MG, BID
  4. DICYCLOMINE [Concomitant]
     Active Substance: DICYCLOMINE HYDROCHLORIDE
     Indication: IRRITABLE BOWEL SYNDROME
  5. FEXOFENADINE [Concomitant]
     Active Substance: FEXOFENADINE\FEXOFENADINE HYDROCHLORIDE
     Indication: SEASONAL ALLERGY
  6. ASPIRIN. [Concomitant]
     Active Substance: ASPIRIN
  7. AMOXICILLIN. [Concomitant]
     Active Substance: AMOXICILLIN
     Dosage: 500 MG, BID
  8. OCELLA [Suspect]
     Active Substance: DROSPIRENONE\ETHINYL ESTRADIOL
     Indication: PREMENSTRUAL SYNDROME
     Dosage: UNK
     Dates: start: 200904, end: 20100603
  9. OCELLA [Suspect]
     Active Substance: DROSPIRENONE\ETHINYL ESTRADIOL
     Indication: MENSTRUATION IRREGULAR
  10. SERTRALINE [Concomitant]
     Active Substance: SERTRALINE HYDROCHLORIDE
     Dosage: 50 MG, QD
  11. FLUCONAZOLE. [Concomitant]
     Active Substance: FLUCONAZOLE
     Dosage: 150 MG, PRN DAILY
  12. YAZ [Suspect]
     Active Substance: DROSPIRENONE\ETHINYL ESTRADIOL
     Indication: MENSTRUATION IRREGULAR
  13. CELEXA [Concomitant]
     Active Substance: CITALOPRAM HYDROBROMIDE
     Indication: IRRITABLE BOWEL SYNDROME
  14. YAZ [Suspect]
     Active Substance: DROSPIRENONE\ETHINYL ESTRADIOL
     Indication: PREMENSTRUAL SYNDROME
     Dosage: UNK
     Dates: start: 200901, end: 200904
  15. HYDROCODONE W/ACETAMINOPHEN [Concomitant]
     Active Substance: ACETAMINOPHEN\HYDROCODONE BITARTRATE
     Dosage: 7.5 MG/750 MG EVERY 4 HOURS AS NEEDED
  16. OMEGA 3 FATTY ACIDS [Concomitant]
     Active Substance: OMEGA-3 FATTY ACIDS

REACTIONS (12)
  - Lacunar infarction [Recovered/Resolved]
  - Injury [None]
  - Emotional distress [None]
  - Mood altered [None]
  - Dysphagia [Recovered/Resolved]
  - Dysuria [Recovered/Resolved]
  - Urinary retention [Recovered/Resolved]
  - Speech disorder [Recovered/Resolved]
  - Pain [Recovered/Resolved]
  - Oedema [Recovered/Resolved]
  - Mood swings [None]
  - Anhedonia [None]

NARRATIVE: CASE EVENT DATE: 20100406
